FAERS Safety Report 23283448 (Version 1)
Quarter: 2023Q4

REPORT INFORMATION
  Report Type: Spontaneous
  Country: US (occurrence: None)
  Receive Date: 20231211
  Receipt Date: 20231211
  Transmission Date: 20240110
  Serious: Yes (Hospitalization)
  Sender: FDA-Public Use
  Company Number: US-FARMAPROD-202312-3550

PATIENT
  Sex: Female

DRUGS (15)
  1. OXERVATE [Suspect]
     Active Substance: CENEGERMIN-BKBJ
     Indication: Neurotrophic keratopathy
     Route: 047
     Dates: start: 20231116
  2. CARVEDILOL [Concomitant]
     Active Substance: CARVEDILOL
  3. MAGNESIUM OXIDE [Concomitant]
     Active Substance: MAGNESIUM OXIDE
  4. SPIRONOLACTONE [Concomitant]
     Active Substance: SPIRONOLACTONE
  5. REFRESH OPTIVE [Concomitant]
     Active Substance: CARBOXYMETHYLCELLULOSE SODIUM\GLYCERIN
     Dosage: 0.5%-0.9%
  6. PREGABALIN [Concomitant]
     Active Substance: PREGABALIN
  7. PROZAC [Concomitant]
     Active Substance: FLUOXETINE HYDROCHLORIDE
  8. LEVOTHYROXINE SODIUM [Concomitant]
     Active Substance: LEVOTHYROXINE SODIUM
  9. PIOGLITAZONE [Concomitant]
     Active Substance: PIOGLITAZONE
  10. TELMISARTAN [Concomitant]
     Active Substance: TELMISARTAN
  11. PRIMIDONE [Concomitant]
     Active Substance: PRIMIDONE
  12. HYDRALAZINE HCL [Concomitant]
     Active Substance: HYDRALAZINE HYDROCHLORIDE
  13. CELECOXIB [Concomitant]
     Active Substance: CELECOXIB
  14. MONTELUKAST SODIUM [Concomitant]
     Active Substance: MONTELUKAST SODIUM
  15. CLONAZEPAM [Concomitant]
     Active Substance: CLONAZEPAM

REACTIONS (2)
  - Hypertension [Unknown]
  - Wrong technique in product usage process [Unknown]
